FAERS Safety Report 15757128 (Version 1)
Quarter: 2018Q4

REPORT INFORMATION
  Report Type: Spontaneous
  Country: IT (occurrence: IT)
  Receive Date: 20181224
  Receipt Date: 20181224
  Transmission Date: 20190205
  Serious: Yes (Hospitalization)
  Sender: FDA-Public Use
  Company Number: IT-PFIZER INC-940265

PATIENT
  Age: 58 Year
  Sex: Male

DRUGS (3)
  1. OXALIPLATINO HOSPIRA [Suspect]
     Active Substance: OXALIPLATIN
     Indication: COLON CANCER
     Dosage: 170 MG, 1X/DAY(FREQ: 1 DAY;INTERVAL:1)
     Route: 042
     Dates: start: 20110523, end: 20110523
  2. FLUOROURACIL. [Concomitant]
     Active Substance: FLUOROURACIL
     Dosage: 2400 MG, FREQ: 1 HOUR; INTERVAL: 48.
     Route: 041
  3. FLUOROURACIL. [Concomitant]
     Active Substance: FLUOROURACIL
     Dosage: 800 MG, ON DAY 1
     Route: 040

REACTIONS (4)
  - Paraesthesia [Recovered/Resolved]
  - Aphasia [Recovered/Resolved]
  - Tongue oedema [Recovered/Resolved]
  - Pruritus [Recovered/Resolved]

NARRATIVE: CASE EVENT DATE: 20110523
